FAERS Safety Report 5868121-4 (Version None)
Quarter: 2008Q3

REPORT INFORMATION
  Report Type: 
  Country: None (occurrence: None)
  Receive Date: 20080902
  Receipt Date: 20080512
  Transmission Date: 20090109
  Serious: No
  Sender: FDA-Public Use
  Company Number: US-ABBOTT-08P-163-0451741-00

PATIENT
  Sex: Male
  Weight: 87.168 kg

DRUGS (4)
  1. DEPAKOTE ER [Suspect]
     Indication: AFFECTIVE DISORDER
     Dosage: 1000 MG QHS
     Route: 048
     Dates: start: 19940101
  2. LITHIUM CARBONATE [Concomitant]
     Indication: AFFECTIVE DISORDER
     Dosage: 1200 MG DAILY
     Route: 048
     Dates: start: 19780101, end: 20071101
  3. CLONAZEPAM [Concomitant]
     Indication: PANIC REACTION
     Dosage: 0.5 MG QHS
     Route: 048
  4. CLONAZEPAM [Concomitant]
     Indication: INSOMNIA

REACTIONS (8)
  - ASTHENIA [None]
  - FATIGUE [None]
  - HEADACHE [None]
  - HYPERTENSION [None]
  - MALAISE [None]
  - NAUSEA [None]
  - PARAESTHESIA [None]
  - WEIGHT INCREASED [None]
